FAERS Safety Report 10263583 (Version 1)
Quarter: 2014Q2

REPORT INFORMATION
  Report Type: Spontaneous
  Country: US (occurrence: US)
  Receive Date: 20140626
  Receipt Date: 20140626
  Transmission Date: 20141212
  Serious: No
  Sender: FDA-Public Use
  Company Number: US-GILEAD-2014-0106476

PATIENT
  Age: 45 Year
  Sex: Male

DRUGS (1)
  1. SOVALDI [Suspect]
     Indication: HEPATITIS C
     Dosage: 400 MG, QD
     Route: 048

REACTIONS (3)
  - Vomiting [Unknown]
  - Fatigue [Unknown]
  - Anxiety [Unknown]
